FAERS Safety Report 16624596 (Version 1)
Quarter: 2019Q3

REPORT INFORMATION
  Report Type: Spontaneous
  Country: US (occurrence: US)
  Receive Date: 20190723
  Receipt Date: 20190723
  Transmission Date: 20191004
  Serious: Yes (Other)
  Sender: FDA-Public Use
  Company Number: None

PATIENT
  Age: 35 Year
  Weight: 83.25 kg

DRUGS (6)
  1. VITAMIN D [Concomitant]
     Active Substance: VITAMIN D NOS
  2. FERROUS SULFIDE [Concomitant]
     Active Substance: FERROUS SULFIDE
  3. ACTIVATED CHARCOAL. [Concomitant]
     Active Substance: ACTIVATED CHARCOAL
  4. VALPORIC ACID [Suspect]
     Active Substance: VALPROIC ACID
     Indication: SCHIZOPHRENIA
     Dosage: ?          QUANTITY:4 TEASPOON(S);?
     Route: 048
     Dates: start: 20190417
  5. DEPAKENE [Concomitant]
     Active Substance: VALPROIC ACID
  6. RISPERADEL [Concomitant]

REACTIONS (5)
  - Tremor [None]
  - Blood glucose fluctuation [None]
  - Dizziness [None]
  - Product taste abnormal [None]
  - Hallucination [None]

NARRATIVE: CASE EVENT DATE: 20190722
